FAERS Safety Report 7004961-6 (Version None)
Quarter: 2010Q3

REPORT INFORMATION
  Report Type: 
  Country: None (occurrence: None)
  Receive Date: 20100921
  Receipt Date: 20100916
  Transmission Date: 20110219
  Serious: Yes (Other)
  Sender: FDA-Public Use
  Company Number: US-BAYER-201020126BCC

PATIENT
  Age: 67 Year
  Sex: Male
  Weight: 111 kg

DRUGS (1)
  1. ASPIRIN [Suspect]
     Indication: ISCHAEMIC HEART DISEASE PROPHYLAXIS
     Route: 048

REACTIONS (2)
  - CONSTIPATION [None]
  - GASTRIC HAEMORRHAGE [None]
